FAERS Safety Report 15211968 (Version 1)
Quarter: 2018Q4

REPORT INFORMATION
  Report Type: Report from Study
  Country: IN (occurrence: IN)
  Receive Date: 20180729
  Receipt Date: 20180729
  Transmission Date: 20190204
  Serious: Yes (Other)
  Sender: FDA-Public Use
  Company Number: IN-BAXTER-2018BAX020159

PATIENT

DRUGS (9)
  1. BUPICAN HEAVY [Suspect]
     Active Substance: BUPIVACAINE HYDROCHLORIDE
     Indication: NERVE BLOCK
     Route: 065
  2. DEXTED (DEXMEDETOMIDINE) [Suspect]
     Active Substance: DEXMEDETOMIDINE
     Route: 041
  3. FENTANYL. [Suspect]
     Active Substance: FENTANYL
     Indication: PAIN PROPHYLAXIS
     Route: 065
  4. XYLOCAINE [Suspect]
     Active Substance: LIDOCAINE HYDROCHLORIDE
     Indication: PAIN MANAGEMENT
     Dosage: BEFORE DURAL INCISION
     Route: 065
  5. DEXTED (DEXMEDETOMIDINE) [Suspect]
     Active Substance: DEXMEDETOMIDINE
     Dosage: 0.5-0.7 MICROGRAM/KG/H
     Route: 041
  6. DEXTED (DEXMEDETOMIDINE) [Suspect]
     Active Substance: DEXMEDETOMIDINE
     Dosage: 0.5-0.7 MICROGRAM/KG/H
     Route: 041
  7. XYLOCAINE [Suspect]
     Active Substance: LIDOCAINE HYDROCHLORIDE
     Indication: LOCAL ANAESTHESIA
     Dosage: BEFORE SKIN INCISION
     Route: 065
  8. ONDANSETRON [Suspect]
     Active Substance: ONDANSETRON
     Indication: PROPHYLAXIS OF NAUSEA AND VOMITING
     Route: 042
  9. DEXTED (DEXMEDETOMIDINE) [Suspect]
     Active Substance: DEXMEDETOMIDINE
     Indication: SEDATIVE THERAPY
     Route: 040

REACTIONS (2)
  - Air embolism [Unknown]
  - Embolism venous [Unknown]
